FAERS Safety Report 26114081 (Version 1)
Quarter: 2025Q4

REPORT INFORMATION
  Report Type: Spontaneous
  Country: CN (occurrence: CN)
  Receive Date: 20251202
  Receipt Date: 20251202
  Transmission Date: 20260118
  Serious: Yes (Hospitalization, Other)
  Sender: NOVO NORDISK
  Company Number: CN-NOVOPROD-1571401

PATIENT
  Age: 40 Year
  Sex: Male
  Weight: 70.4 kg

DRUGS (5)
  1. OZEMPIC [Suspect]
     Active Substance: SEMAGLUTIDE
     Indication: Type 2 diabetes mellitus
     Dosage: 1 MG, QW
     Route: 058
     Dates: start: 20250825
  2. OZEMPIC [Suspect]
     Active Substance: SEMAGLUTIDE
     Indication: Type 2 diabetes mellitus
     Dosage: 0.25 MG, QW
     Route: 058
     Dates: start: 20250628, end: 20250722
  3. OZEMPIC [Suspect]
     Active Substance: SEMAGLUTIDE
     Dosage: 0.5 MG, QW
     Route: 058
     Dates: start: 20250723, end: 20250824
  4. FENOFIBRATE [Concomitant]
     Active Substance: FENOFIBRATE
     Indication: Product used for unknown indication
     Dosage: 0.2 G, QD
     Dates: start: 20250330
  5. ORAL REHYDRATION SALT [Concomitant]
     Indication: Product used for unknown indication
     Dosage: 5.125 G, QD
     Dates: start: 20251017, end: 20251031

REACTIONS (1)
  - Choroidal neovascularisation [Recovering/Resolving]

NARRATIVE: CASE EVENT DATE: 20251111
